FAERS Safety Report 23020275 (Version 1)
Quarter: 2023Q4

REPORT INFORMATION
  Report Type: Spontaneous
  Country: US (occurrence: None)
  Receive Date: 20231002
  Receipt Date: 20231002
  Transmission Date: 20240109
  Serious: Yes (Life-Threatening, Hospitalization, Other)
  Sender: FDA-Public Use
  Company Number: None

PATIENT
  Age: 76 Year
  Sex: Male
  Weight: 56 kg

DRUGS (1)
  1. TECLISTAMAB [Suspect]
     Active Substance: TECLISTAMAB
     Indication: Plasma cell myeloma
     Dates: start: 20230927

REACTIONS (4)
  - Cytokine release syndrome [None]
  - Immune effector cell-associated neurotoxicity syndrome [None]
  - Hypotension [None]
  - Mental status changes [None]

NARRATIVE: CASE EVENT DATE: 20230929
